FAERS Safety Report 8030718-3 (Version None)
Quarter: 2012Q1

REPORT INFORMATION
  Report Type: 
  Country: None (occurrence: None)
  Receive Date: 20120109
  Receipt Date: 20111201
  Transmission Date: 20120608
  Serious: Yes (Other)
  Sender: FDA-Public Use
  Company Number: JP-ROCHE-1022468

PATIENT
  Sex: Female
  Weight: 54 kg

DRUGS (20)
  1. ACTEMRA [Suspect]
     Indication: RHEUMATOID ARTHRITIS
     Route: 041
     Dates: start: 20080730, end: 20080730
  2. ACTEMRA [Suspect]
     Route: 041
     Dates: start: 20090311, end: 20090311
  3. VOLTAREN [Concomitant]
     Route: 048
  4. ACTEMRA [Suspect]
     Route: 041
     Dates: start: 20080828, end: 20080828
  5. ACTEMRA [Suspect]
     Route: 041
     Dates: start: 20080924, end: 20080924
  6. ACTEMRA [Suspect]
     Route: 041
     Dates: start: 20090210, end: 20090210
  7. ACTEMRA [Suspect]
  8. PREDNISOLONE [Concomitant]
     Route: 048
  9. FELBINAC [Concomitant]
     Dosage: FORM: TAPE; DRUG NAME: SELTOUCH; NOTE: DOSAGE ADJUSTED
     Route: 061
  10. OMEPRAZOLE [Concomitant]
     Dosage: FORM: ENTERIC
     Route: 048
  11. VOLTAREN [Concomitant]
     Dosage: FORM: SUSTAINED RELEASE CAPSULE
     Route: 048
  12. ACTEMRA [Suspect]
     Route: 041
     Dates: start: 20081120, end: 20081120
  13. MUCOSTA [Concomitant]
     Route: 048
  14. MUCOSTA [Concomitant]
     Route: 048
  15. PRAVASTATIN SODIUM [Concomitant]
     Route: 048
  16. ACTEMRA [Suspect]
     Route: 041
     Dates: start: 20081022, end: 20081022
  17. ISONIAZID [Concomitant]
     Dosage: DRUG NAME: ISCOTIN
     Route: 048
     Dates: start: 20080730, end: 20081218
  18. ACTEMRA [Suspect]
     Route: 041
     Dates: start: 20081218, end: 20081218
  19. ACTEMRA [Suspect]
     Route: 041
     Dates: start: 20090113, end: 20090113
  20. PREDNISOLONE [Concomitant]
     Route: 048

REACTIONS (1)
  - ANGINA PECTORIS [None]
